FAERS Safety Report 8790059 (Version 1)
Quarter: 2012Q4

REPORT INFORMATION
  Report Type: 
  Country: US (occurrence: US)
  Receive Date: 20120917
  Receipt Date: 20120917
  Transmission Date: 20130627
  Serious: No
  Sender: FDA-Public Use
  Company Number: US-BAYER-2012-096022

PATIENT
  Age: 28 Year
  Sex: Female

DRUGS (1)
  1. GADAVIST [Suspect]
     Dosage: 7.5 ml, ONCE
     Dates: start: 20120912, end: 20120912

REACTIONS (4)
  - Dyspnoea [None]
  - Chest pain [None]
  - Painful respiration [None]
  - Cough [None]
